FAERS Safety Report 9384721 (Version 1)
Quarter: 2013Q3

REPORT INFORMATION
  Report Type: Report from Study
  Country: US (occurrence: US)
  Receive Date: 20130705
  Receipt Date: 20130705
  Transmission Date: 20140515
  Serious: Yes (Hospitalization)
  Sender: FDA-Public Use
  Company Number: US-BAYER-2013-081342

PATIENT
  Age: 76 Year
  Sex: Female

DRUGS (1)
  1. STIVARGA [Suspect]
     Indication: PRODUCT USED FOR UNKNOWN INDICATION
     Dosage: DAILY DOSE 160 MG
     Route: 048
     Dates: start: 20130525, end: 20130610

REACTIONS (6)
  - Fall [None]
  - Confusional state [None]
  - Delirium [None]
  - Asthenia [None]
  - Dizziness [None]
  - Off label use [None]
